FAERS Safety Report 11706193 (Version 2)
Quarter: 2015Q4

REPORT INFORMATION
  Report Type: Spontaneous
  Country: JP (occurrence: JP)
  Receive Date: 20151106
  Receipt Date: 20151120
  Transmission Date: 20160304
  Serious: No
  Sender: FDA-Public Use
  Company Number: JP-BRISTOL-MYERS SQUIBB COMPANY-BMS-2015-074974

PATIENT
  Age: 71 Year
  Sex: Female

DRUGS (2)
  1. DAKLINZA [Suspect]
     Active Substance: DACLATASVIR
     Indication: CHRONIC HEPATITIS C
     Dosage: 60 MG, QD
     Route: 048
     Dates: start: 20150512
  2. SUNVEPRA [Suspect]
     Active Substance: ASUNAPREVIR
     Indication: CHRONIC HEPATITIS C
     Dosage: 100 MG, BID
     Route: 048
     Dates: start: 20150512

REACTIONS (1)
  - Anaemia [Recovered/Resolved]

NARRATIVE: CASE EVENT DATE: 20150512
